FAERS Safety Report 9303758 (Version 1)
Quarter: 2013Q2

REPORT INFORMATION
  Report Type: Spontaneous
  Country: US (occurrence: US)
  Receive Date: 20130522
  Receipt Date: 20130522
  Transmission Date: 20140414
  Serious: Yes (Life-Threatening, Hospitalization, Disabling, Other)
  Sender: FDA-Public Use
  Company Number: US-GLAXOSMITHKLINE-A1023723A

PATIENT
  Age: 76 Year
  Sex: Female

DRUGS (3)
  1. PROMACTA [Suspect]
     Indication: IDIOPATHIC THROMBOCYTOPENIC PURPURA
     Dosage: 50MG PER DAY
     Route: 048
     Dates: start: 201203, end: 20130509
  2. LEVOTHROID [Concomitant]
  3. VICODIN [Concomitant]
     Indication: IDIOPATHIC THROMBOCYTOPENIC PURPURA

REACTIONS (7)
  - Cerebral thrombosis [Unknown]
  - Convulsion [Unknown]
  - Hypoaesthesia [Unknown]
  - Dysarthria [Unknown]
  - Asthenia [Unknown]
  - Headache [Unknown]
  - Platelet count decreased [Unknown]
